FAERS Safety Report 8112677-8 (Version None)
Quarter: 2012Q1

REPORT INFORMATION
  Report Type: 
  Country: None (occurrence: None)
  Receive Date: 20120203
  Receipt Date: 20120120
  Transmission Date: 20120608
  Serious: Yes (Hospitalization)
  Sender: FDA-Public Use
  Company Number: US-ROCHE-1034054

PATIENT
  Sex: Female

DRUGS (6)
  1. XOLAIR [Suspect]
     Dates: start: 20110928
  2. ALBUTEROL [Concomitant]
  3. XOLAIR [Suspect]
     Dates: start: 20110601
  4. XOLAIR [Suspect]
     Indication: PRODUCT USED FOR UNKNOWN INDICATION
     Dates: start: 20110601
  5. ADVAIR DISKUS 100/50 [Concomitant]
  6. SINGULAIR [Concomitant]

REACTIONS (2)
  - ASTHMA [None]
  - MENSTRUATION IRREGULAR [None]
